FAERS Safety Report 10462624 (Version 2)
Quarter: 2014Q3

REPORT INFORMATION
  Report Type: Spontaneous
  Country: DK (occurrence: JP)
  Receive Date: 20140918
  Receipt Date: 20140918
  Transmission Date: 20150326
  Serious: Yes (Other)
  Sender: FDA-Public Use
  Company Number: JP-FRI-1000070146

PATIENT
  Age: 29 Year
  Sex: Male
  Weight: 71 kg

DRUGS (8)
  1. SEROQUEL [Suspect]
     Active Substance: QUETIAPINE FUMARATE
     Dosage: 1400 MG
     Route: 048
     Dates: start: 20140619
  2. SEROQUEL [Suspect]
     Active Substance: QUETIAPINE FUMARATE
     Dosage: 700 MG
     Route: 048
     Dates: start: 20140619
  3. DEPAKENE [Suspect]
     Active Substance: VALPROIC ACID
     Dosage: 2800 MG
     Route: 048
     Dates: start: 20140619
  4. LEXAPRO [Suspect]
     Active Substance: ESCITALOPRAM OXALATE
     Indication: DEPRESSION
     Dosage: 20 MG
     Route: 048
     Dates: start: 20120808, end: 20140801
  5. LEXAPRO [Suspect]
     Active Substance: ESCITALOPRAM OXALATE
     Dosage: OVERDOSE: 140 MG
     Route: 048
     Dates: start: 20140619
  6. PANTETHINE [Concomitant]
     Active Substance: PANTETHINE
     Dosage: 700 MG
     Route: 048
     Dates: start: 20140619
  7. TASMOLIN [Suspect]
     Active Substance: BIPERIDEN
     Dosage: 7 MG
     Route: 048
     Dates: start: 20140619
  8. BROTIZOLAM [Suspect]
     Active Substance: BROTIZOLAM
     Dosage: 1.75 MG
     Route: 048
     Dates: start: 20140619

REACTIONS (6)
  - Overdose [Recovered/Resolved]
  - Depressed level of consciousness [Unknown]
  - Somnolence [Unknown]
  - Blood pressure decreased [Unknown]
  - Suicide attempt [Recovered/Resolved]
  - Blood creatine phosphokinase increased [Unknown]

NARRATIVE: CASE EVENT DATE: 20140619
